FAERS Safety Report 15705917 (Version 1)
Quarter: 2018Q4

REPORT INFORMATION
  Report Type: Spontaneous
  Country: CA (occurrence: CA)
  Receive Date: 20181210
  Receipt Date: 20181210
  Transmission Date: 20190205
  Serious: Yes (Other)
  Sender: FDA-Public Use
  Company Number: CA-JNJFOC-20181201982

PATIENT
  Age: 7 Year
  Sex: Male

DRUGS (2)
  1. RISPERIDONE. [Suspect]
     Active Substance: RISPERIDONE
     Indication: ATTENTION DEFICIT/HYPERACTIVITY DISORDER
     Route: 065
  2. RISPERIDONE. [Suspect]
     Active Substance: RISPERIDONE
     Indication: ATTENTION DEFICIT/HYPERACTIVITY DISORDER
     Route: 065

REACTIONS (9)
  - Serum sickness [Recovering/Resolving]
  - Product use in unapproved indication [Unknown]
  - Angioedema [Unknown]
  - Arthritis [Unknown]
  - Urticarial vasculitis [Recovered/Resolved]
  - Viral rash [Unknown]
  - Peripheral swelling [Unknown]
  - Off label use [Unknown]
  - Lymphadenopathy [Unknown]
